FAERS Safety Report 17195802 (Version 1)
Quarter: 2019Q4

REPORT INFORMATION
  Report Type: Spontaneous
  Country: US (occurrence: US)
  Receive Date: 20191203
  Receipt Date: 20191203
  Transmission Date: 20200122
  Serious: No
  Sender: FDA-Public Use
  Company Number: None

PATIENT
  Age: 15 Year
  Sex: Male
  Weight: 74.84 kg

DRUGS (4)
  1. HYDROCORTISON 2.5% OINTMENT [Concomitant]
  2. SODIUM SULFACETAMIDE 10 SULFUR 5 CLEANSER [Suspect]
     Active Substance: SULFACETAMIDE SODIUM\SULFUR
     Dosage: ?          OTHER FREQUENCY:AM PM;?
     Route: 065
     Dates: start: 20191013, end: 20191014
  3. MINOCYCLINE [Concomitant]
     Active Substance: MINOCYCLINE HYDROCHLORIDE
  4. DOVONEX [Concomitant]
     Active Substance: CALCIPOTRIENE

REACTIONS (1)
  - Rash [None]

NARRATIVE: CASE EVENT DATE: 20191014
